FAERS Safety Report 8538930 (Version 12)
Quarter: 2015Q3

REPORT INFORMATION
  Report Type: Report from Study
  Country: DE (occurrence: US)
  Receive Date: 20120501
  Receipt Date: 20150824
  Transmission Date: 20151125
  Serious: Yes (Hospitalization)
  Sender: FDA-Public Use
  Company Number: US-ROCHE-1063678

PATIENT
  Age: 61 Year
  Sex: Male
  Weight: 72.11 kg

DRUGS (7)
  1. RIBAVIRIN. [Suspect]
     Active Substance: RIBAVIRIN
     Indication: HEPATITIS C
     Route: 048
     Dates: start: 20111020, end: 20120325
  2. ACYCLOVIR. [Concomitant]
     Active Substance: ACYCLOVIR
     Route: 065
     Dates: start: 20120105, end: 20120112
  3. LIDEX [Concomitant]
     Active Substance: FLUOCINONIDE
     Route: 065
     Dates: start: 20120112, end: 20120202
  4. PEG-INTERFERON ALFA 2A [Suspect]
     Active Substance: PEGINTERFERON ALFA-2A
     Indication: HEPATITIS C
     Route: 058
     Dates: start: 20111020, end: 20120315
  5. BLINDED ALISPORIVIR [Suspect]
     Active Substance: ALISPORIVIR
     Indication: HEPATITIS C
     Route: 048
     Dates: start: 20111020, end: 20120325
  6. GABAPENTIN. [Concomitant]
     Active Substance: GABAPENTIN
     Route: 065
     Dates: start: 20111110
  7. FOSAMAX [Concomitant]
     Active Substance: ALENDRONATE SODIUM
     Route: 065
     Dates: start: 20111110

REACTIONS (4)
  - Type 2 diabetes mellitus [Recovering/Resolving]
  - Pancreatitis [Recovering/Resolving]
  - Diabetic ketoacidosis [Recovered/Resolved]
  - Pneumonia [Recovered/Resolved]

NARRATIVE: CASE EVENT DATE: 20120326
